FAERS Safety Report 8033451-7 (Version None)
Quarter: 2012Q1

REPORT INFORMATION
  Report Type: 
  Country: None (occurrence: None)
  Receive Date: 20120110
  Receipt Date: 20111227
  Transmission Date: 20120608
  Serious: Yes (Other)
  Sender: FDA-Public Use
  Company Number: US-RB-032544-12

PATIENT
  Age: 82 Year
  Sex: Female

DRUGS (5)
  1. FISH OIL [Concomitant]
     Indication: PRODUCT USED FOR UNKNOWN INDICATION
  2. MUCINEX DM [Suspect]
     Indication: COUGH
     Dosage: TOTAL OF SIX TABLETS
     Route: 048
  3. NORVASC [Concomitant]
     Indication: BLOOD PRESSURE
  4. AVAPRO [Concomitant]
     Indication: BLOOD PRESSURE
  5. ASPIRIN [Concomitant]
     Indication: PRODUCT USED FOR UNKNOWN INDICATION

REACTIONS (2)
  - BLOOD PRESSURE INCREASED [None]
  - HEARING IMPAIRED [None]
